FAERS Safety Report 10232395 (Version 1)
Quarter: 2014Q2

REPORT INFORMATION
  Report Type: Spontaneous
  Country: US (occurrence: None)
  Receive Date: 20140506
  Receipt Date: 20140506
  Transmission Date: 20141212
  Serious: Yes (Hospitalization)
  Sender: FDA-Public Use
  Company Number: 1214726

PATIENT
  Age: 62 Year
  Sex: Male

DRUGS (6)
  1. AVASTIN (BEVACIZUMAB) [Suspect]
     Indication: COLON CANCER
     Dosage: (945 MG, 1 IN 2 WK), INTRAVENOUS (NOT OTHERWISE SPECIFIED)
     Route: 042
     Dates: start: 20120612, end: 20130318
  2. VICODIN (HYDROCODONE TARTRATE, PARACETAMOL) [Concomitant]
  3. SIMVASTATIN (SIMVASTATIN) [Concomitant]
  4. ACTOS (PIOGLITAZONE HYDROCHLORIDE) [Concomitant]
  5. GLIPIZIDE (GLIPIZIDE) [Concomitant]
  6. LISINOPRIL (LISINOPRIL) [Concomitant]

REACTIONS (1)
  - Pulmonary embolism [None]
